FAERS Safety Report 4316744-6 (Version None)
Quarter: 2004Q1

REPORT INFORMATION
  Report Type: 
  Country: None (occurrence: None)
  Receive Date: 20040311
  Receipt Date: 20040224
  Transmission Date: 20041129
  Serious: Yes (Hospitalization)
  Sender: FDA-Public Use
  Company Number: US-JNJFOC-20040206003

PATIENT
  Age: 76 Year
  Sex: Female

DRUGS (6)
  1. INFLIXIMAB (INFLIXIMAB, RECOMBINANT) LYOPHILIZED POWDER [Suspect]
     Indication: RHEUMATOID ARTHRITIS
     Dosage: INTRAVENOUS
     Route: 042
     Dates: start: 20010806, end: 20030301
  2. METHOTREXATE [Concomitant]
  3. PREDNISONE [Concomitant]
  4. FOSAMAX [Concomitant]
  5. TUMS (CALCIUM CARBONATE) [Concomitant]
  6. MULTIVITAMIN (MULTIVITAMINS) [Concomitant]

REACTIONS (2)
  - ARTHRITIS BACTERIAL [None]
  - SEPSIS [None]
